FAERS Safety Report 5474916-1 (Version None)
Quarter: 2007Q3

REPORT INFORMATION
  Report Type: 
  Country: None (occurrence: None)
  Receive Date: 20070831
  Receipt Date: 20070612
  Transmission Date: 20080115
  Serious: No
  Sender: FDA-Public Use
  Company Number: 240906

PATIENT
  Age: 79 Year
  Sex: Female

DRUGS (13)
  1. LUCENTIS [Suspect]
     Indication: DRUG USE FOR UNKNOWN INDICATION
     Dosage: INTRAVITREAL
     Dates: start: 20070501
  2. ATENOLOL [Concomitant]
  3. LOPEDIUM (LOPERAMIDE HYDROCHLORIDE) [Concomitant]
  4. LISINOPRIL [Concomitant]
  5. HYDROCHLOROTHIAZIDE [Concomitant]
  6. FOSAMAX [Concomitant]
  7. LOVASTATIN [Concomitant]
  8. CALCIUM 600 +D (CALCIUM NOS, CHOLECALCIFEROL) [Concomitant]
  9. ASCORBIC ACID [Concomitant]
  10. ZINC (ZINC NOS) [Concomitant]
  11. B12 COMPLEX (CYANOCOBALAMIN, VITAMIN B COMPLEX) [Concomitant]
  12. FOLIC ACID [Concomitant]
  13. FISHOIL (FISH OIL) [Concomitant]

REACTIONS (1)
  - SUPERFICIAL INJURY OF EYE [None]
